FAERS Safety Report 24910752 (Version 1)
Quarter: 2025Q1

REPORT INFORMATION
  Report Type: Spontaneous
  Country: US (occurrence: US)
  Receive Date: 20250131
  Receipt Date: 20250131
  Transmission Date: 20250408
  Serious: Yes (Other)
  Sender: AMARIN
  Company Number: US-Amarin Pharma  Inc-2025AMR000041

PATIENT
  Age: 57 Year
  Sex: Male

DRUGS (2)
  1. VASCEPA [Suspect]
     Active Substance: ICOSAPENT ETHYL
     Indication: Blood cholesterol increased
  2. ATORVASTATIN [Concomitant]
     Active Substance: ATORVASTATIN
     Indication: Product used for unknown indication

REACTIONS (8)
  - Knee operation [Unknown]
  - Hernia [Unknown]
  - Dizziness [Unknown]
  - Weight increased [Unknown]
  - Hypertension [Unknown]
  - Blood cholesterol increased [Unknown]
  - Drug ineffective [Unknown]
  - Treatment noncompliance [Unknown]
